FAERS Safety Report 8188595-6 (Version None)
Quarter: 2012Q1

REPORT INFORMATION
  Report Type: 
  Country: None (occurrence: None)
  Receive Date: 20120306
  Receipt Date: 20120305
  Transmission Date: 20120608
  Serious: Yes (Death, Hospitalization)
  Sender: FDA-Public Use
  Company Number: PHFR2011GB006711

PATIENT
  Sex: Male
  Weight: 70 kg

DRUGS (17)
  1. QVAR 40 [Concomitant]
  2. CHLORHEXIDINE GLUCONATE [Concomitant]
  3. ONBREZ [Suspect]
     Indication: CHRONIC OBSTRUCTIVE PULMONARY DISEASE
     Dosage: 150 UG, UNK
     Dates: start: 20110525
  4. IPRATROPIUM BROMIDE [Concomitant]
  5. PREDNISOLONE [Concomitant]
     Dosage: 5 MG, UNK
  6. ALBUTEROL [Concomitant]
  7. DERMOL SOL [Concomitant]
  8. LIGHT LIQUID PARAFFIN [Concomitant]
  9. ATIMOS MODULITE [Concomitant]
     Dosage: UNK
  10. TIOTROPIUM [Concomitant]
     Dosage: UNK
  11. BETAMETHASONE VALERATE [Concomitant]
  12. VENTOLIN [Concomitant]
  13. LANSOPRAZOLE [Concomitant]
  14. RAMIPRIL [Concomitant]
     Dosage: 10 MG, UNK
  15. DITHRANOL [Concomitant]
  16. BETAMETHASONE W/CALCIPOTRIOL [Concomitant]
  17. BETNOVATE [Concomitant]

REACTIONS (3)
  - MYOCARDIAL ISCHAEMIA [None]
  - SKIN DISORDER [None]
  - CHRONIC OBSTRUCTIVE PULMONARY DISEASE [None]
